FAERS Safety Report 16557863 (Version 1)
Quarter: 2019Q3

REPORT INFORMATION
  Report Type: Report from Study
  Country: US (occurrence: US)
  Receive Date: 20190711
  Receipt Date: 20190711
  Transmission Date: 20191004
  Serious: Yes (Hospitalization)
  Sender: FDA-Public Use
  Company Number: US-ROCHE-2218571

PATIENT
  Sex: Male

DRUGS (1)
  1. OCREVUS [Suspect]
     Active Substance: OCRELIZUMAB
     Indication: MULTIPLE SCLEROSIS
     Dosage: 1ST HALF DOSE?SECOND HALF DOSE RECEIVED ON 16/MAY/2018
     Route: 065
     Dates: start: 20180502

REACTIONS (4)
  - Aggression [Unknown]
  - Fall [Unknown]
  - Anger [Unknown]
  - Dizziness [Unknown]
